FAERS Safety Report 5135799-2 (Version None)
Quarter: 2006Q4

REPORT INFORMATION
  Report Type: 
  Country: None (occurrence: None)
  Receive Date: 20061026
  Receipt Date: 20061017
  Transmission Date: 20070319
  Serious: Yes (Congenital Anomaly)
  Sender: FDA-Public Use
  Company Number: GB-ROXANE LABORATORIES, INC-2006-BP-12511RO

PATIENT

DRUGS (4)
  1. ZIDOVUDINE [Suspect]
     Indication: HIV INFECTION
     Dosage: IN UTERO EXPOSURE
     Route: 064
  2. NORVIR [Suspect]
     Indication: HIV INFECTION
     Dosage: IN UTERO EXPOSURE
     Route: 064
  3. LAMIVUDINE [Suspect]
     Indication: HIV INFECTION
     Dosage: IN UTERO EXPOSURE
     Route: 064
  4. INVIRASE [Suspect]
     Indication: HIV INFECTION
     Dosage: IN UTERO EXPOSURE
     Route: 064

REACTIONS (3)
  - CONGENITAL HYDRONEPHROSIS [None]
  - DRUG EXPOSURE DURING PREGNANCY [None]
  - HYDRONEPHROSIS [None]
